APPROVED DRUG PRODUCT: ARGATROBAN
Active Ingredient: ARGATROBAN
Strength: 250MG/2.5ML (100MG/ML)
Dosage Form/Route: INJECTABLE;INJECTION
Application: N203049 | Product #001 | TE Code: AP
Applicant: HIKMA PHARM CO LTD
Approved: Jan 5, 2012 | RLD: Yes | RS: Yes | Type: RX